FAERS Safety Report 23258840 (Version 2)
Quarter: 2024Q1

REPORT INFORMATION
  Report Type: Spontaneous
  Country: US (occurrence: US)
  Receive Date: 20231204
  Receipt Date: 20240103
  Transmission Date: 20240409
  Serious: Yes (Hospitalization)
  Sender: FDA-Public Use
  Company Number: US-BAYER-2023A170157

PATIENT
  Age: 13 Year
  Sex: Male

DRUGS (1)
  1. KOGENATE FS [Suspect]
     Active Substance: ANTIHEMOPHILIC FACTOR, HUMAN RECOMBINANT
     Indication: Haemorrhage
     Dosage: 3 DF

REACTIONS (4)
  - Haemorrhage [Not Recovered/Not Resolved]
  - Peripheral swelling [None]
  - Pain in extremity [None]
  - Limb injury [None]

NARRATIVE: CASE EVENT DATE: 20231101
